FAERS Safety Report 7479137-9 (Version None)
Quarter: 2011Q2

REPORT INFORMATION
  Report Type: 
  Country: None (occurrence: None)
  Receive Date: 20110513
  Receipt Date: 20110504
  Transmission Date: 20111010
  Serious: Yes (Hospitalization)
  Sender: FDA-Public Use
  Company Number: US-BRISTOL-MYERS SQUIBB COMPANY-15667520

PATIENT
  Age: 70 Year
  Sex: Male
  Weight: 70 kg

DRUGS (23)
  1. KYTRIL [Concomitant]
     Indication: NAUSEA
     Route: 042
     Dates: start: 20110302
  2. SODIUM CHLORIDE [Concomitant]
     Indication: ASTHENIA
     Route: 042
     Dates: start: 20110302
  3. GLYCOLAX [Concomitant]
     Route: 065
  4. RESTORIL [Concomitant]
     Route: 065
  5. MIRALAX [Concomitant]
     Indication: CONSTIPATION
     Route: 048
     Dates: start: 20110221
  6. FLUOROURACIL [Suspect]
     Indication: HEAD AND NECK CANCER
     Dosage: DURATION:57 DAYS. MOST RECENT INFU:23MAR11 NO OF INFU:3
     Route: 042
     Dates: start: 20110124, end: 20110323
  7. MAGNESIUM OXIDE [Concomitant]
     Indication: HYPOMAGNESAEMIA
     Route: 048
     Dates: start: 20110302
  8. MINOCYCLINE HCL [Concomitant]
     Indication: RASH
     Route: 048
     Dates: start: 20110311
  9. PREDNISONE [Concomitant]
     Indication: FATIGUE
     Route: 048
     Dates: start: 20110330
  10. CLINDAMYCIN [Concomitant]
     Indication: DERMATITIS ACNEIFORM
     Route: 061
     Dates: start: 20110207
  11. DEXTROSE [Concomitant]
     Indication: FATIGUE
     Dosage: 1DF=20.UNIT NOT SPECIFIED
     Route: 042
     Dates: start: 20110302
  12. SODIUM CHLORIDE [Concomitant]
     Indication: FATIGUE
     Route: 042
     Dates: start: 20110302
  13. PRILOSEC [Concomitant]
     Route: 065
  14. CISPLATIN [Suspect]
     Indication: HEAD AND NECK CANCER
     Dosage: DURATION:57 DAYS MOST RECENT INFU:23MAR11 NO OF INFU:3
     Route: 042
     Dates: start: 20110124, end: 20110323
  15. KYTRIL [Concomitant]
     Indication: FATIGUE
     Route: 042
     Dates: start: 20110302
  16. K-DUR [Concomitant]
     Route: 065
  17. ERBITUX [Suspect]
     Indication: HEAD AND NECK CANCER
     Dosage: DURATION:64 DAYS. MOST RECENT INFU:30MAR11 NO OF INFU:9
     Route: 042
     Dates: start: 20110124, end: 20110330
  18. MINOCYCLINE HCL [Concomitant]
     Indication: DERMATITIS ACNEIFORM
     Route: 048
     Dates: start: 20110214
  19. POTASSIUM CHLORIDE [Concomitant]
     Indication: HYPOKALAEMIA
     Route: 048
     Dates: start: 20110131
  20. DEXTROSE [Concomitant]
     Indication: NAUSEA
     Dosage: 1DF=20.UNIT NOT SPECIFIED
     Route: 042
     Dates: start: 20110302
  21. PREVACID [Concomitant]
     Route: 065
  22. PHENERGAN HCL [Concomitant]
     Indication: NAUSEA
     Route: 048
     Dates: start: 20110124
  23. ANZEMET [Concomitant]
     Indication: NAUSEA
     Route: 048
     Dates: start: 20110124

REACTIONS (2)
  - UPPER GASTROINTESTINAL HAEMORRHAGE [None]
  - HYPOTENSION [None]
